FAERS Safety Report 8066635-2 (Version None)
Quarter: 2012Q1

REPORT INFORMATION
  Report Type: 
  Country: None (occurrence: None)
  Receive Date: 20120124
  Receipt Date: 20120119
  Transmission Date: 20120608
  Serious: Yes (Hospitalization)
  Sender: FDA-Public Use
  Company Number: PHHY2011US57868

PATIENT
  Sex: Female
  Weight: 79.365 kg

DRUGS (2)
  1. EXJADE [Suspect]
     Indication: IRON OVERLOAD
  2. EXJADE [Suspect]
     Indication: NEOPLASM
     Dosage: 1625 MG, DAILY
     Route: 048
     Dates: start: 20080725

REACTIONS (3)
  - DIARRHOEA [None]
  - FALL [None]
  - ABDOMINAL PAIN UPPER [None]
